FAERS Safety Report 8111632-1 (Version None)
Quarter: 2011Q4

REPORT INFORMATION
  Report Type: 
  Country: None (occurrence: None)
  Receive Date: 20111223
  Receipt Date: 20111018
  Transmission Date: 20120403
  Serious: Yes (Other)
  Sender: FDA-Public Use
  Company Number: PHEH2011US07286

PATIENT

DRUGS (4)
  1. KLONOPIN [Concomitant]
  2. TRAZODONE HCL [Concomitant]
  3. VALTREX [Concomitant]
  4. CLOZARIL [Suspect]
     Dosage: 500 MG, QD, ORAL
     Route: 048

REACTIONS (2)
  - DIABETES MELLITUS [None]
  - ANTIPSYCHOTIC DRUG LEVEL INCREASED [None]
